FAERS Safety Report 6382559-0 (Version None)
Quarter: 2009Q3

REPORT INFORMATION
  Report Type: 
  Country: None (occurrence: None)
  Receive Date: 20090926
  Receipt Date: 20090926
  Transmission Date: 20100115
  Serious: No
  Sender: FDA-Public Use
  Company Number: None

PATIENT
  Age: 92 Year
  Sex: Male
  Weight: 61.36 kg

DRUGS (1)
  1. RANTIDINE [Suspect]
     Dosage: 50 MG BID IV
     Route: 042
     Dates: start: 20090124, end: 20090129

REACTIONS (1)
  - THROMBOCYTOPENIA [None]
